FAERS Safety Report 6840932 (Version 8)
Quarter: 2012Q4

REPORT INFORMATION
  Report Type: 
  Country: GB (occurrence: GB)
  Receive Date: 20081210
  Receipt Date: 20120829
  Transmission Date: 20130627
  Serious: Yes (Death, Hospitalization, Other)
  Sender: FDA-Public Use
  Company Number: GB-CELGENEUS-167-21880-08111434

PATIENT
  Age: 62 Year
  Sex: Male
  Weight: 68 kg

DRUGS (2)
  1. REVLIMID [Suspect]
     Indication: MANTLE CELL LYMPHOMA
     Dosage: 25 Milligram
     Route: 048
     Dates: start: 20081119
  2. REVLIMID [Suspect]
     Dosage: 15 Milligram
     Route: 048
     Dates: start: 20081216, end: 20081218

REACTIONS (7)
  - Tumour flare [Recovering/Resolving]
  - Cerebrovascular accident [Fatal]
  - Thrombocytopenia [Unknown]
  - Pneumonia aspiration [Fatal]
  - Mantle cell lymphoma [Fatal]
  - Dehydration [Recovered/Resolved with Sequelae]
  - Vomiting [Recovered/Resolved with Sequelae]
